FAERS Safety Report 6346036-5 (Version None)
Quarter: 2009Q3

REPORT INFORMATION
  Report Type: 
  Country: None (occurrence: None)
  Receive Date: 20090901
  Receipt Date: 20090129
  Transmission Date: 20100115
  Serious: Yes (Other)
  Sender: FDA-Public Use
  Company Number: PIR# 0901034A

PATIENT
  Age: 65 Year
  Sex: Male
  Weight: 76.2043 kg

DRUGS (1)
  1. CEFAZOLIN [Suspect]

REACTIONS (1)
  - RASH ERYTHEMATOUS [None]
